FAERS Safety Report 7192201 (Version 3)
Quarter: 2024Q2

REPORT INFORMATION
  Report Type: Spontaneous
  Country: GR (occurrence: GR)
  Receive Date: 20091129
  Receipt Date: 20240501
  Transmission Date: 20240716
  Serious: Yes (Death, Hospitalization, Other)
  Sender: FDA-Public Use
  Company Number: PHHY2009GR51495

PATIENT
  Age: 44 Year
  Sex: Male

DRUGS (17)
  1. CYCLOSPORINE [Suspect]
     Active Substance: CYCLOSPORINE
     Indication: Renal transplant
     Dosage: 8 MG/KG, QD
     Route: 065
  2. CYCLOSPORINE [Suspect]
     Active Substance: CYCLOSPORINE
     Indication: Immunosuppressant drug therapy
  3. PREDNISOLONE [Suspect]
     Active Substance: PREDNISOLONE
     Indication: Immunosuppressant drug therapy
     Dosage: 15 MG, QD
     Route: 065
  4. PREDNISOLONE [Suspect]
     Active Substance: PREDNISOLONE
     Indication: Renal transplant
  5. MYCOPHENOLATE MOFETIL [Suspect]
     Active Substance: MYCOPHENOLATE MOFETIL
     Indication: Immunosuppressant drug therapy
     Dosage: 2 G, QD
     Route: 065
  6. MYCOPHENOLATE MOFETIL [Suspect]
     Active Substance: MYCOPHENOLATE MOFETIL
     Indication: Renal transplant
  7. CEFTRIAXONE [Suspect]
     Active Substance: CEFTRIAXONE\CEFTRIAXONE SODIUM
     Indication: Antibiotic therapy
     Dosage: UNK
     Route: 065
  8. CEFTRIAXONE [Suspect]
     Active Substance: CEFTRIAXONE\CEFTRIAXONE SODIUM
     Indication: Pneumocystis jirovecii pneumonia
  9. PENTAMIDINE [Suspect]
     Active Substance: PENTAMIDINE
     Indication: Product used for unknown indication
     Dosage: 4 MG/KG, QD
     Route: 042
  10. PENTAMIDINE [Suspect]
     Active Substance: PENTAMIDINE
     Indication: Antibiotic therapy
  11. ERYTHROMYCIN [Suspect]
     Active Substance: ERYTHROMYCIN
     Indication: Pneumocystis jirovecii pneumonia
     Dosage: UNK
     Route: 065
  12. ERYTHROMYCIN [Suspect]
     Active Substance: ERYTHROMYCIN
     Indication: Antibiotic therapy
  13. SULFAMETHOXAZOLE AND TRIMETHOPRIM [Suspect]
     Active Substance: SULFAMETHOXAZOLE\TRIMETHOPRIM
     Indication: Pneumocystis jirovecii pneumonia
     Dosage: 100 MG/KG; 20 MG/KG
     Route: 042
  14. DAPSONE [Suspect]
     Active Substance: DAPSONE
     Indication: Product used for unknown indication
     Dosage: 100 MG, QD
     Route: 065
  15. HYDROCORTISONE [Concomitant]
     Active Substance: HYDROCORTISONE
     Indication: Product used for unknown indication
     Dosage: 125 MG, TID
     Route: 065
  16. GANCICLOVIR [Concomitant]
     Active Substance: GANCICLOVIR
     Indication: Antiviral prophylaxis
     Dosage: UNK
     Route: 065
  17. THYMOCYTE IMMUNE GLOBULIN NOS [Concomitant]
     Active Substance: THYMOCYTE IMMUNE GLOBULIN NOS
     Indication: Renal transplant
     Dosage: 1.5 MG/KG/DAY
     Route: 065

REACTIONS (18)
  - Pneumocystis jirovecii pneumonia [Fatal]
  - Pulmonary haemorrhage [Fatal]
  - Hypercapnia [Fatal]
  - Pneumothorax [Fatal]
  - Pulmonary cavitation [Fatal]
  - Lung infiltration [Fatal]
  - Lung abscess [Fatal]
  - Pleurisy [Fatal]
  - Pyrexia [Fatal]
  - Dyspnoea [Fatal]
  - Lung disorder [Fatal]
  - Aspiration pleural cavity [Fatal]
  - General physical health deterioration [Fatal]
  - Torsade de pointes [Recovered/Resolved]
  - Condition aggravated [Fatal]
  - Treatment failure [Fatal]
  - Respiratory disorder [Fatal]
  - Arrhythmia [Recovered/Resolved]
